FAERS Safety Report 12208618 (Version 1)
Quarter: 2016Q1

REPORT INFORMATION
  Report Type: Spontaneous
  Country: US (occurrence: US)
  Receive Date: 20160324
  Receipt Date: 20160324
  Transmission Date: 20160526
  Serious: No
  Sender: FDA-Public Use
  Company Number: US-SHIONOGI, INC-2015000949

PATIENT
  Sex: Female

DRUGS (4)
  1. LEVOTHYROXINE. [Concomitant]
     Active Substance: LEVOTHYROXINE
     Indication: HYPOTHYROIDISM
     Dosage: UNK
     Route: 065
  2. OSPHENA [Suspect]
     Active Substance: OSPEMIFENE
     Dosage: 60 MG, QD
     Route: 048
     Dates: start: 2015, end: 2015
  3. OSPHENA [Suspect]
     Active Substance: OSPEMIFENE
     Indication: DYSPAREUNIA
     Dosage: 60 MG, QD
     Route: 048
     Dates: start: 2014, end: 2015
  4. OSPHENA [Suspect]
     Active Substance: OSPEMIFENE
     Dosage: 60 MG, 2-3 TIMES A WEEK
     Route: 048
     Dates: start: 2015

REACTIONS (4)
  - Inability to afford medication [Unknown]
  - Inappropriate schedule of drug administration [Unknown]
  - Cystitis [Recovered/Resolved]
  - Dyspareunia [Not Recovered/Not Resolved]

NARRATIVE: CASE EVENT DATE: 2015
